FAERS Safety Report 11460066 (Version 3)
Quarter: 2015Q3

REPORT INFORMATION
  Report Type: Spontaneous
  Country: JP (occurrence: None)
  Receive Date: 20150904
  Receipt Date: 20150916
  Transmission Date: 20151125
  Serious: Yes (Death, Other)
  Sender: FDA-Public Use
  Company Number: JP-MDT-ADR-2015-01721

PATIENT
  Age: 75 Year
  Sex: Female

DRUGS (1)
  1. GABLOFEN [Suspect]
     Active Substance: BACLOFEN
     Dosage: 120 MCG/DAY

REACTIONS (2)
  - Senile dementia [None]
  - General physical health deterioration [None]
